FAERS Safety Report 9303966 (Version 2)
Quarter: 2013Q2

REPORT INFORMATION
  Report Type: Spontaneous
  Country: GB (occurrence: GB)
  Receive Date: 20130522
  Receipt Date: 20130625
  Transmission Date: 20140414
  Serious: Yes (Other)
  Sender: FDA-Public Use
  Company Number: GB-ASTRAZENECA-2013SE33781

PATIENT
  Age: 65 Year
  Sex: Male

DRUGS (4)
  1. SYMBICORT [Suspect]
     Indication: ASTHMA
     Dosage: 200/6 UG UNKNOWN DOSE WITH UNKNOWN FREQUENCY
     Route: 055
     Dates: start: 20121123
  2. BUDESONIDE [Concomitant]
  3. SIMVASTATIN [Concomitant]
     Indication: BLOOD CHOLESTEROL INCREASED
     Route: 048
     Dates: start: 20100528
  4. SALBUTOMOL [Concomitant]

REACTIONS (4)
  - Syncope [Recovered/Resolved]
  - Amnesia [Recovered/Resolved]
  - Adverse event [Recovered/Resolved]
  - Palpitations [Recovered/Resolved]
